FAERS Safety Report 5279669-8 (Version None)
Quarter: 2007Q1

REPORT INFORMATION
  Report Type: 
  Country: None (occurrence: None)
  Receive Date: 20070323
  Receipt Date: 20070228
  Transmission Date: 20070707
  Serious: Yes (Death, Hospitalization)
  Sender: FDA-Public Use
  Company Number: 200702IM000095

PATIENT
  Sex: Male
  Weight: 95.7 kg

DRUGS (10)
  1. INTERFERON GAMMA-1B [Suspect]
     Indication: IDIOPATHIC PULMONARY FIBROSIS
     Dates: start: 20061211, end: 20070212
  2. IBUPROFEN [Concomitant]
  3. ALBUTEROL [Concomitant]
  4. ACETAMINOPHEN [Concomitant]
  5. LIPITOR [Concomitant]
  6. CALCIUM [Concomitant]
  7. SAW PALMETTO [Concomitant]
  8. COMBIVENT [Concomitant]
  9. ADVAIR DISKUS 100/50 [Concomitant]
  10. CYRUTA PLUS [Concomitant]

REACTIONS (5)
  - DISEASE PROGRESSION [None]
  - IDIOPATHIC PULMONARY FIBROSIS [None]
  - LUNG INJURY [None]
  - PNEUMONIA [None]
  - PULMONARY HAEMORRHAGE [None]
